FAERS Safety Report 10036249 (Version 2)
Quarter: 2014Q2

REPORT INFORMATION
  Report Type: Report from Study
  Country: US (occurrence: US)
  Receive Date: 20140325
  Receipt Date: 20140530
  Transmission Date: 20141212
  Serious: Yes (Hospitalization, Other)
  Sender: FDA-Public Use
  Company Number: US-ABBVIE-14P-163-1212506-00

PATIENT
  Age: 48 Year
  Sex: Female
  Weight: 121.67 kg

DRUGS (11)
  1. HUMIRA [Suspect]
     Indication: PSORIATIC ARTHROPATHY
     Route: 058
     Dates: start: 201207, end: 201305
  2. HUMIRA [Suspect]
     Route: 058
     Dates: start: 201306
  3. ATORVASTATIN [Concomitant]
     Indication: BLOOD CHOLESTEROL INCREASED
  4. HYDROCHLOROTHIAZIDE [Concomitant]
     Indication: FLUID RETENTION
  5. LEVOTHYROXINE [Concomitant]
     Indication: HYPOTHYROIDISM
  6. CYMBALTA [Concomitant]
     Indication: DEPRESSION
  7. ESTRADIOL [Concomitant]
     Indication: HORMONE REPLACEMENT THERAPY
  8. HYDROCODONE/ACETAMINOPHEN [Concomitant]
     Indication: PAIN
  9. CYCLOBENZAPRINE [Concomitant]
     Indication: PAIN
  10. VALACYCLOVIR [Concomitant]
     Indication: HERPES ZOSTER
  11. VALACYCLOVIR [Concomitant]
     Indication: VITAMIN SUPPLEMENTATION

REACTIONS (5)
  - Mycobacterium tuberculosis complex test positive [Recovering/Resolving]
  - Volvulus [Recovered/Resolved]
  - Abdominal hernia [Recovering/Resolving]
  - Psoriasis [Not Recovered/Not Resolved]
  - Latent tuberculosis [Not Recovered/Not Resolved]
